FAERS Safety Report 7220005-5 (Version None)
Quarter: 2011Q1

REPORT INFORMATION
  Report Type: 
  Country: None (occurrence: None)
  Receive Date: 20110111
  Receipt Date: 20100427
  Transmission Date: 20110831
  Serious: Yes (Hospitalization, Other)
  Sender: FDA-Public Use
  Company Number: US-PFIZER INC-2010056040

PATIENT
  Sex: Female

DRUGS (8)
  1. PLAVIX [Concomitant]
     Dosage: UNK
     Route: 065
  2. LEVOTHYROXINE [Concomitant]
     Dosage: UNK
     Route: 065
  3. FUROSEMIDE [Concomitant]
     Dosage: UNK
     Route: 065
  4. CRESTOR [Suspect]
     Dosage: UNK
     Route: 048
  5. VITAMINS NOS [Concomitant]
     Dosage: UNK
     Route: 065
  6. ATENOLOL [Suspect]
     Dosage: UNK
     Route: 065
  7. LISINOPRIL [Suspect]
     Dosage: UNK
     Route: 065
  8. ASPIRIN [Concomitant]
     Dosage: UNK
     Route: 065

REACTIONS (3)
  - STENT PLACEMENT [None]
  - BREAST CANCER [None]
  - MYOCARDIAL INFARCTION [None]
